FAERS Safety Report 25582784 (Version 1)
Quarter: 2025Q3

REPORT INFORMATION
  Report Type: Report from Study
  Country: US (occurrence: US)
  Receive Date: 20250720
  Receipt Date: 20250720
  Transmission Date: 20251021
  Serious: Yes (Hospitalization)
  Sender: ABBVIE
  Company Number: US-ABBVIE-6375255

PATIENT
  Sex: Female

DRUGS (1)
  1. RINVOQ [Suspect]
     Active Substance: UPADACITINIB
     Indication: Rheumatoid arthritis
     Route: 048
     Dates: start: 2023

REACTIONS (5)
  - Spinal fusion surgery [Recovering/Resolving]
  - Rehabilitation therapy [Unknown]
  - Fall [Unknown]
  - Shoulder fracture [Unknown]
  - Hemiplegia [Recovering/Resolving]

NARRATIVE: CASE EVENT DATE: 20250101
